FAERS Safety Report 8520304-0 (Version None)
Quarter: 2012Q3

REPORT INFORMATION
  Report Type: 
  Country: None (occurrence: None)
  Receive Date: 20120719
  Receipt Date: 20120711
  Transmission Date: 20120928
  Serious: Yes (Hospitalization, Other)
  Sender: FDA-Public Use
  Company Number: US-US-EMD SERONO, INC.-7147246

PATIENT
  Sex: Female

DRUGS (1)
  1. REBIF [Suspect]
     Indication: MULTIPLE SCLEROSIS
     Route: 058
     Dates: start: 20120507

REACTIONS (5)
  - MULTIPLE SCLEROSIS [None]
  - URINARY TRACT INFECTION [None]
  - HYPERTENSION [None]
  - RALES [None]
  - FEELING ABNORMAL [None]
